FAERS Safety Report 8185265-5 (Version None)
Quarter: 2012Q1

REPORT INFORMATION
  Report Type: 
  Country: None (occurrence: None)
  Receive Date: 20120305
  Receipt Date: 20120224
  Transmission Date: 20120608
  Serious: Yes (Other)
  Sender: FDA-Public Use
  Company Number: PHHY2012JP014659

PATIENT
  Sex: Male

DRUGS (2)
  1. FLUOROURACIL [Concomitant]
     Dosage: UNK UKN, UNK
     Route: 048
  2. ZOMETA [Suspect]
     Indication: METASTASES TO BONE
     Dosage: 4 MG PER ADMINISTRATION
     Route: 041
     Dates: start: 20120204, end: 20120204

REACTIONS (2)
  - HYPOAESTHESIA [None]
  - NEUROPATHY PERIPHERAL [None]
